FAERS Safety Report 10480542 (Version 1)
Quarter: 2014Q3

REPORT INFORMATION
  Report Type: Spontaneous
  Country: US (occurrence: None)
  Receive Date: 20140926
  Receipt Date: 20140926
  Transmission Date: 20150326
  Serious: No
  Sender: FDA-Public Use
  Company Number: None

PATIENT
  Age: 37 Year
  Sex: Male
  Weight: 102.06 kg

DRUGS (1)
  1. LEVETIRACETAM. [Suspect]
     Active Substance: LEVETIRACETAM
     Indication: CONVULSION
     Route: 048
     Dates: start: 20140924, end: 20140925

REACTIONS (5)
  - Dizziness [None]
  - Impaired work ability [None]
  - Malaise [None]
  - Disorientation [None]
  - Vomiting [None]

NARRATIVE: CASE EVENT DATE: 20140923
